FAERS Safety Report 16708446 (Version 2)
Quarter: 2019Q3

REPORT INFORMATION
  Report Type: Spontaneous
  Country: DE (occurrence: DE)
  Receive Date: 20190816
  Receipt Date: 20190826
  Transmission Date: 20191004
  Serious: Yes (Other)
  Sender: FDA-Public Use
  Company Number: DE-BRISTOL-MYERS SQUIBB COMPANY-BMS-2019-078035

PATIENT
  Age: 74 Year
  Sex: Male

DRUGS (4)
  1. SELEGILIN [Concomitant]
     Active Substance: SELEGILINE
     Indication: PARKINSONISM
     Dosage: 10 MILLIGRAM, PER DAY
     Route: 065
  2. NIVOLUMAB [Suspect]
     Active Substance: NIVOLUMAB
     Indication: MALIGNANT MELANOMA
     Dosage: UNK (4 CYCLES)
     Route: 065
     Dates: start: 201810, end: 201812
  3. IPILIMUMAB [Suspect]
     Active Substance: IPILIMUMAB
     Indication: MALIGNANT MELANOMA
     Dosage: UNK (4 CYCLES)
     Route: 065
     Dates: start: 201810, end: 201812
  4. PEMBROLIZUMAB. [Concomitant]
     Active Substance: PEMBROLIZUMAB
     Indication: PRODUCT USED FOR UNKNOWN INDICATION
     Route: 065

REACTIONS (1)
  - Parkinsonism [Unknown]
